FAERS Safety Report 18620141 (Version 5)
Quarter: 2021Q2

REPORT INFORMATION
  Report Type: Spontaneous
  Country: US (occurrence: US)
  Receive Date: 20201215
  Receipt Date: 20210422
  Transmission Date: 20210717
  Serious: No
  Sender: FDA-Public Use
  Company Number: NVSC2020US330659

PATIENT
  Age: 78 Year
  Sex: Female

DRUGS (3)
  1. COSENTYX [Suspect]
     Active Substance: SECUKINUMAB
     Indication: PSORIATIC ARTHROPATHY
     Dosage: 300 MG, QW (2 PENS 300 MG)
     Route: 058
     Dates: start: 20201207
  2. COSENTYX [Suspect]
     Active Substance: SECUKINUMAB
     Route: 058
  3. COSENTYX [Suspect]
     Active Substance: SECUKINUMAB
     Dosage: 150 MG, QMO
     Route: 058

REACTIONS (8)
  - Off label use [Unknown]
  - Device difficult to use [Unknown]
  - Pustular psoriasis [Unknown]
  - Pruritus [Unknown]
  - Injection site pain [Unknown]
  - Skin exfoliation [Unknown]
  - Accidental exposure to product [Unknown]
  - Poor quality sleep [Unknown]

NARRATIVE: CASE EVENT DATE: 202012
